FAERS Safety Report 8847536 (Version 3)
Quarter: 2012Q4

REPORT INFORMATION
  Report Type: 
  Country: US (occurrence: US)
  Receive Date: 20121018
  Receipt Date: 20121220
  Transmission Date: 20130627
  Serious: Yes (Hospitalization, Other)
  Sender: FDA-Public Use
  Company Number: US-VERTEX PHARMACEUTICAL INC.-2012-022701

PATIENT
  Age: 60 None
  Sex: Female
  Weight: 73 kg

DRUGS (3)
  1. INCIVEK [Suspect]
     Indication: HEPATITIS C
     Dosage: 750 mg, tid
     Route: 048
     Dates: start: 20120321, end: 201204
  2. RIBAVIRIN [Suspect]
     Indication: HEPATITIS C
     Dosage: 2 tabs, bid
     Dates: start: 20120321, end: 201204
  3. PEGASYS [Suspect]
     Indication: HEPATITIS C
     Dosage: UNK
     Dates: start: 20120321, end: 201204

REACTIONS (15)
  - Septic shock [Unknown]
  - Peritonitis bacterial [Unknown]
  - Hepatic encephalopathy [Unknown]
  - Hepatorenal syndrome [Unknown]
  - Hypertension [Unknown]
  - Diabetes mellitus [Not Recovered/Not Resolved]
  - Ascites [Unknown]
  - Electrolyte imbalance [Unknown]
  - Hyperkalaemia [Unknown]
  - Syncope [Unknown]
  - Liver function test abnormal [Unknown]
  - Blood potassium decreased [None]
  - Anaemia [Unknown]
  - Platelet count decreased [None]
  - Drug ineffective [None]
